FAERS Safety Report 8865514 (Version 1)
Quarter: 2012Q4

REPORT INFORMATION
  Report Type: 
  Country: US (occurrence: US)
  Receive Date: 20121024
  Receipt Date: 20121024
  Transmission Date: 20130627
  Serious: No
  Sender: FDA-Public Use
  Company Number: US-AMGEN-USASP2012003309

PATIENT
  Age: 51 Year
  Sex: Male
  Weight: 72.56 kg

DRUGS (7)
  1. ENBREL [Suspect]
     Indication: PRODUCT USED FOR UNKNOWN INDICATION
     Dosage: 50 mg, qwk
     Route: 058
  2. FOLIC ACID [Concomitant]
     Dosage: 1 mg, UNK
  3. METHOTREXATE [Concomitant]
     Dosage: 2.5 mg, UNK
  4. MULTIVITAMIN                       /00097801/ [Concomitant]
  5. PERCOCET                           /00446701/ [Concomitant]
  6. VICODIN [Concomitant]
     Dosage: 5 mg, UNK
  7. CALCIUM [Concomitant]

REACTIONS (1)
  - Rash [Recovered/Resolved]
